FAERS Safety Report 5250629-6 (Version None)
Quarter: 2007Q1

REPORT INFORMATION
  Report Type: 
  Country: None (occurrence: None)
  Receive Date: 20070228
  Receipt Date: 20060608
  Transmission Date: 20070707
  Serious: No
  Sender: FDA-Public Use
  Company Number: US-GLAXOSMITHKLINE-A0608360A

PATIENT
  Age: 35 Year
  Sex: Female

DRUGS (5)
  1. LAMICTAL [Suspect]
     Indication: BIPOLAR DISORDER
     Dosage: 100MG PER DAY
     Route: 048
  2. EFFEXOR [Concomitant]
  3. CLONOPIN [Concomitant]
  4. SEROQUEL [Concomitant]
  5. ORAL CONTRACEPTIVES [Concomitant]

REACTIONS (3)
  - COGNITIVE DISORDER [None]
  - MEMORY IMPAIRMENT [None]
  - RASH [None]
